FAERS Safety Report 25013358 (Version 1)
Quarter: 2025Q1

REPORT INFORMATION
  Report Type: Spontaneous
  Country: US (occurrence: US)
  Receive Date: 20250226
  Receipt Date: 20250226
  Transmission Date: 20250409
  Serious: No
  Sender: BRISTOL-MYERS SQUIBB COMPANY
  Company Number: US-BRISTOL-MYERS SQUIBB COMPANY-2025-027919

PATIENT
  Age: 69 Year
  Sex: Female

DRUGS (1)
  1. REVLIMID [Suspect]
     Active Substance: LENALIDOMIDE
     Indication: Plasma cell myeloma

REACTIONS (6)
  - Pain [Recovering/Resolving]
  - Fatigue [Recovering/Resolving]
  - Depression [Recovering/Resolving]
  - Psychiatric symptom [Recovering/Resolving]
  - Constipation [Recovering/Resolving]
  - Product use issue [Unknown]
